FAERS Safety Report 12385436 (Version 2)
Quarter: 2016Q2

REPORT INFORMATION
  Report Type: Report from Study
  Country: US (occurrence: US)
  Receive Date: 20160519
  Receipt Date: 20160607
  Transmission Date: 20160815
  Serious: No
  Sender: FDA-Public Use
  Company Number: US-AMGEN-USASL2016063137

PATIENT
  Age: 63 Year
  Sex: Female

DRUGS (1)
  1. ENBREL [Suspect]
     Active Substance: ETANERCEPT
     Indication: RHEUMATOID ARTHRITIS
     Dosage: UNK UNK, QWK
     Route: 065
     Dates: start: 20160407

REACTIONS (18)
  - Night sweats [Unknown]
  - Dysphonia [Unknown]
  - Headache [Not Recovered/Not Resolved]
  - Restlessness [Not Recovered/Not Resolved]
  - Hyperaesthesia [Recovered/Resolved]
  - Muscular weakness [Unknown]
  - Nervousness [Unknown]
  - Sciatica [Unknown]
  - Joint swelling [Unknown]
  - Asthenia [Unknown]
  - Burning sensation [Unknown]
  - Peripheral swelling [Unknown]
  - Insomnia [Unknown]
  - Feeling hot [Unknown]
  - Tremor [Unknown]
  - Arthralgia [Unknown]
  - Pain [Unknown]
  - Pain in extremity [Unknown]

NARRATIVE: CASE EVENT DATE: 2016
